FAERS Safety Report 12993647 (Version 2)
Quarter: 2017Q1

REPORT INFORMATION
  Report Type: Spontaneous
  Country: US (occurrence: US)
  Receive Date: 20161202
  Receipt Date: 20170116
  Transmission Date: 20170428
  Serious: No
  Sender: FDA-Public Use
  Company Number: US-JNJFOC-20161118513

PATIENT
  Age: 7 Year
  Sex: Male

DRUGS (18)
  1. RIPSERDAL [Suspect]
     Active Substance: RISPERIDONE
     Indication: ANGER
     Dosage: 0.5MG,1MG
     Route: 048
     Dates: start: 20090918, end: 20120131
  2. RIPSERDAL [Suspect]
     Active Substance: RISPERIDONE
     Indication: SLEEP DISORDER
     Route: 048
     Dates: start: 2003
  3. RISPERIDONE. [Suspect]
     Active Substance: RISPERIDONE
     Indication: PRODUCT USED FOR UNKNOWN INDICATION
     Route: 048
     Dates: start: 20090918, end: 20140530
  4. RIPSERDAL [Suspect]
     Active Substance: RISPERIDONE
     Indication: ANXIETY
     Dosage: 0.5MG,1MG
     Route: 048
     Dates: start: 20090918, end: 20120131
  5. RIPSERDAL [Suspect]
     Active Substance: RISPERIDONE
     Indication: SLEEP DISORDER
     Dosage: 0.5MG,1MG
     Route: 048
     Dates: start: 20090918, end: 20120131
  6. RIPSERDAL [Suspect]
     Active Substance: RISPERIDONE
     Indication: AFFECTIVE DISORDER
     Route: 048
     Dates: start: 20131216, end: 20140530
  7. RISPERIDONE. [Suspect]
     Active Substance: RISPERIDONE
     Indication: PRODUCT USED FOR UNKNOWN INDICATION
     Route: 048
  8. RIPSERDAL [Suspect]
     Active Substance: RISPERIDONE
     Indication: ANGER
     Route: 048
     Dates: start: 20131216, end: 20140530
  9. RIPSERDAL [Suspect]
     Active Substance: RISPERIDONE
     Indication: ANGER
     Dosage: 0.25MG,0.5MG,1MG
     Route: 048
     Dates: start: 20041011, end: 20050418
  10. RIPSERDAL [Suspect]
     Active Substance: RISPERIDONE
     Indication: SLEEP DISORDER
     Dosage: 0.25MG,0.5MG,1MG
     Route: 048
     Dates: start: 20041011, end: 20050418
  11. RIPSERDAL [Suspect]
     Active Substance: RISPERIDONE
     Indication: AFFECTIVE DISORDER
     Route: 048
     Dates: start: 2003
  12. RIPSERDAL [Suspect]
     Active Substance: RISPERIDONE
     Indication: AFFECTIVE DISORDER
     Dosage: 0.5MG,1MG
     Route: 048
     Dates: start: 20090918, end: 20120131
  13. RIPSERDAL [Suspect]
     Active Substance: RISPERIDONE
     Indication: SLEEP DISORDER
     Route: 048
     Dates: start: 20131216, end: 20140530
  14. RIPSERDAL [Suspect]
     Active Substance: RISPERIDONE
     Indication: ANXIETY
     Route: 048
     Dates: start: 2003
  15. RIPSERDAL [Suspect]
     Active Substance: RISPERIDONE
     Indication: ANXIETY
     Route: 048
     Dates: start: 20131216, end: 20140530
  16. RIPSERDAL [Suspect]
     Active Substance: RISPERIDONE
     Indication: ANXIETY
     Dosage: 0.25MG,0.5MG,1MG
     Route: 048
     Dates: start: 20041011, end: 20050418
  17. RIPSERDAL [Suspect]
     Active Substance: RISPERIDONE
     Indication: ANGER
     Route: 048
     Dates: start: 2003
  18. RIPSERDAL [Suspect]
     Active Substance: RISPERIDONE
     Indication: AFFECTIVE DISORDER
     Dosage: 0.25MG,0.5MG,1MG
     Route: 048
     Dates: start: 20041011, end: 20050418

REACTIONS (7)
  - Off label use [Unknown]
  - Anxiety [Unknown]
  - Gynaecomastia [Unknown]
  - Mood altered [Unknown]
  - Weight increased [Unknown]
  - Emotional disorder [Unknown]
  - Product use issue [Unknown]

NARRATIVE: CASE EVENT DATE: 20041011
